FAERS Safety Report 6995248-6 (Version None)
Quarter: 2010Q3

REPORT INFORMATION
  Report Type: 
  Country: None (occurrence: None)
  Receive Date: 20100915
  Receipt Date: 20100831
  Transmission Date: 20110219
  Serious: Yes (Hospitalization)
  Sender: FDA-Public Use
  Company Number: 2010SP002381

PATIENT
  Age: 67 Year
  Sex: Female
  Weight: 68.0396 kg

DRUGS (88)
  1. ARFORMOTEROL TARTRATE [Suspect]
     Indication: CHRONIC OBSTRUCTIVE PULMONARY DISEASE
     Dosage: INHALATION
     Route: 055
     Dates: start: 20091012, end: 20100629
  2. FISH OIL (CON.) [Concomitant]
  3. COD LIVER OIL (CON.) [Concomitant]
  4. PREDNISONE (CON.) [Concomitant]
  5. FUROSEMIDE (CON.) [Concomitant]
  6. MAXALT (CON.) [Concomitant]
  7. LIDODERM PATCH (CON.) [Concomitant]
  8. SPIRIVA (CON.) [Concomitant]
  9. VITAMIN D / 00107901/ (CON.) [Concomitant]
  10. ACIPHEX (CON.) [Concomitant]
  11. LYRICA (CON.) [Concomitant]
  12. HYDROCHLOROTHIAZIDE (CON.) [Concomitant]
  13. FOSAMAX (CON.) [Concomitant]
  14. DIGESTIVES, INCL ENZYMES (CON.) [Concomitant]
  15. MULTIVITAMINS PLUS IRON (CON.) [Concomitant]
  16. CALCIUM MAGNESIUM ZINC (CON.) [Concomitant]
  17. LOVASTATIN (CON.) [Concomitant]
  18. AMITRIPTYLINE (CON.) [Concomitant]
  19. TRAZODONE (CON.) [Concomitant]
  20. HYDROCODONE W/PAP (CON.) [Concomitant]
  21. FLECTOR / 00372302/ (CON.) [Concomitant]
  22. POLYETHYLENE GLYCOL (CON.) [Concomitant]
  23. TUMS /00108001/  (CON.) [Concomitant]
  24. POTASSIUM GLUCONATE (CON.) [Concomitant]
  25. ESTRACE (CON.) [Concomitant]
  26. NEXIUM /01479302/ (CON.) [Concomitant]
  27. OXYCODONE / APAP (CON.) [Concomitant]
  28. POTASSIUM (CON.) [Concomitant]
  29. PREDNISONE (CON.) [Concomitant]
  30. ADVAIR (CON.) [Concomitant]
  31. XOPENEX HFA INHALATION AEROSOL (CON.) [Concomitant]
  32. PREDNISONE (CON.) [Concomitant]
  33. MYCOSTATIN (CON.) [Concomitant]
  34. SENOKOT-S (CON.) [Concomitant]
  35. LEXAPRO (CON.) [Concomitant]
  36. DELTASONE /00044701/ (CON.) [Concomitant]
  37. SYMBICORT (CON.) [Concomitant]
  38. VARENICLINE (CON.) [Concomitant]
  39. PROVENTIL /00139501/ (CON.) [Concomitant]
  40. ATROVENT (CON.) [Concomitant]
  41. SOLU-MEDROL (CON.) [Concomitant]
  42. COLACE (CON.) [Concomitant]
  43. ACETAMINOPHEN (CON.) [Concomitant]
  44. LOVENOX  /00889602/ (CON.) [Concomitant]
  45. ROXICODONE (CON.) [Concomitant]
  46. NACL (CON.) [Concomitant]
  47. HUMULIN R (CON.) [Concomitant]
  48. CHRONULAC (CON.) [Concomitant]
  49. AVELOX (CON.) [Concomitant]
  50. MUCINEX DM (CON.) [Concomitant]
  51. ADVAIR (PREV.) [Concomitant]
  52. PULMICORT (PREV.) [Concomitant]
  53. Z-PAK (PREV.) [Concomitant]
  54. PROMETHAZINE W/CODEINE /01129901/ (PREV.) [Concomitant]
  55. DIFLUCAN (PREV.) [Concomitant]
  56. LACTULOSE (PREV.) [Concomitant]
  57. K-DUR (PREV.) [Concomitant]
  58. AVELOX (PREV.) [Concomitant]
  59. DULCOLAX /00061602/ (PREV.) [Concomitant]
  60. MUCINEX DM (PREV.) [Concomitant]
  61. COLACE (PREV.) [Concomitant]
  62. LOVENOX /00889602/ (PREV.) [Concomitant]
  63. ZOFRAN /00955301/ (PREV.) [Concomitant]
  64. LEXAPRO (PREV.) [Concomitant]
  65. PRILOSEC /00661201/ (PREV.) [Concomitant]
  66. SOLU-MEDROL (PREV.) [Concomitant]
  67. ATROVENT (PREV.) [Concomitant]
  68. ALBUTEROL /00139501/ (PREV.) [Concomitant]
  69. K-LYTE /00067301/ (PREV.) [Concomitant]
  70. SODIUM CHLORIDE (PREV.) [Concomitant]
  71. AVELOX (PREV.) [Concomitant]
  72. SOLU-MEDROL (PREV.) [Concomitant]
  73. DELTASONE /00044701/ (PREV.) [Concomitant]
  74. SEPTRA (PREV.) [Concomitant]
  75. MUCINEX DM (PREV.) [Concomitant]
  76. ROBITUSSIN AC /00074201/ (PREV.) [Concomitant]
  77. CHRONULAC (PREV.) [Concomitant]
  78. MOTRIN (PREV.) [Concomitant]
  79. ROCEPHIN /00672201/ (PREV.) [Concomitant]
  80. SODIUM CHLORIDE (PREV.) [Concomitant]
  81. ZOFRAN /00955301/ (PREV.) [Concomitant]
  82. LOVENOX /00889602/ (PREV.) [Concomitant]
  83. PRILOSEC /00661201/ (PREV.) [Concomitant]
  84. ZITHROMAX (PREV.) [Concomitant]
  85. SYMBICORT (PREV.) [Concomitant]
  86. ATROVENT (PREV.) [Concomitant]
  87. PROVENTIL /00139501/ (PREV.) [Concomitant]
  88. PRAVACHOL (PREV.) [Concomitant]

REACTIONS (3)
  - BRONCHITIS [None]
  - MUSCULOSKELETAL CHEST PAIN [None]
  - PNEUMONIA [None]
